FAERS Safety Report 6049658-4 (Version None)
Quarter: 2009Q1

REPORT INFORMATION
  Report Type: 
  Country: None (occurrence: None)
  Receive Date: 20090124
  Receipt Date: 20090112
  Transmission Date: 20090719
  Serious: Yes (Hospitalization, Other)
  Sender: FDA-Public Use
  Company Number: TW-PFIZER INC-2009154869

PATIENT
  Age: 45 Year
  Sex: Female

DRUGS (5)
  1. CYCLOPHOSPHAMIDE [Suspect]
     Indication: NON-HODGKIN'S LYMPHOMA
     Dosage: 750 MG/M2, DAY 1 EVERY THREE WEEKS
  2. DOXORUBICIN HCL [Suspect]
     Indication: NON-HODGKIN'S LYMPHOMA
     Dosage: 50 MG/M2, DAY 1 EVERY THREE WEEKS
  3. VINCRISTINE SULFATE [Suspect]
     Indication: NON-HODGKIN'S LYMPHOMA
     Dosage: 2 MG, DAY 1 EVERY THREE WEEKS
  4. PREDNISOLONE AND PREDNISOLONE STEAGLATE [Suspect]
     Indication: NON-HODGKIN'S LYMPHOMA
     Dosage: 100 MG/DAY FOR 5 DAYS EVERY THREE WEEKS
  5. RITUXIMAB [Suspect]
     Indication: NON-HODGKIN'S LYMPHOMA
     Dosage: 375 MG/M2, UNK

REACTIONS (3)
  - NEUTROPENIA [None]
  - PARAESTHESIA [None]
  - PNEUMOCYSTIS JIROVECI PNEUMONIA [None]
